FAERS Safety Report 20933421 (Version 2)
Quarter: 2022Q3

REPORT INFORMATION
  Report Type: Spontaneous
  Country: AU (occurrence: AU)
  Receive Date: 20220608
  Receipt Date: 20220707
  Transmission Date: 20221026
  Serious: Yes (Death, Life-Threatening, Other)
  Sender: FDA-Public Use
  Company Number: AU-MLMSERVICE-20220517-3555066-1

PATIENT
  Age: 45 Year
  Sex: Female

DRUGS (5)
  1. DOXORUBICIN [Suspect]
     Active Substance: DOXORUBICIN
     Indication: Follicular lymphoma
     Dosage: HYPER-CVAD
     Route: 065
  2. CYCLOPHOSPHAMIDE [Suspect]
     Active Substance: CYCLOPHOSPHAMIDE
     Indication: Follicular lymphoma
     Dosage: HYPER-CVAD
     Route: 065
  3. DEXAMETHASONE [Suspect]
     Active Substance: DEXAMETHASONE
     Indication: Follicular lymphoma
     Dosage: HYPER-CVAD
     Route: 065
  4. VINCRISTINE [Suspect]
     Active Substance: VINCRISTINE
     Indication: Follicular lymphoma
     Dosage: HYPER-CVAD
     Route: 065
  5. MORPHINE [Concomitant]
     Active Substance: MORPHINE
     Indication: Flank pain
     Dosage: HIGH DOSE
     Route: 065

REACTIONS (7)
  - Gas gangrene [Fatal]
  - Muscle necrosis [Fatal]
  - Thrombocytopenia [Fatal]
  - Febrile neutropenia [Fatal]
  - Bacillus infection [Fatal]
  - Staphylococcal infection [Fatal]
  - Septic shock [Fatal]
